FAERS Safety Report 6087686-3 (Version None)
Quarter: 2009Q1

REPORT INFORMATION
  Report Type: 
  Country: None (occurrence: None)
  Receive Date: 20090223
  Receipt Date: 20090210
  Transmission Date: 20090719
  Serious: Yes (Death)
  Sender: FDA-Public Use
  Company Number: JP-ROCHE-609530

PATIENT
  Age: 100 Year
  Sex: Female

DRUGS (1)
  1. TAMIFLU [Suspect]
     Indication: INFLUENZA
     Dosage: NOTE: UNCERTAINTY
     Route: 048

REACTIONS (2)
  - CONDITION AGGRAVATED [None]
  - PNEUMONIA ASPIRATION [None]
